FAERS Safety Report 5580769-3 (Version None)
Quarter: 2008Q1

REPORT INFORMATION
  Report Type: 
  Country: None (occurrence: None)
  Receive Date: 20080103
  Receipt Date: 20071207
  Transmission Date: 20080703
  Serious: No
  Sender: FDA-Public Use
  Company Number: US-BAYER-200716338NA

PATIENT
  Age: 37 Year
  Sex: Female
  Weight: 53 kg

DRUGS (4)
  1. YAZ [Suspect]
     Indication: CONTRACEPTION
     Route: 048
     Dates: start: 20071201
  2. SYNTHROID [Concomitant]
  3. CYTOMEL [Concomitant]
  4. BOTOX [Concomitant]

REACTIONS (1)
  - INJECTION SITE HAEMORRHAGE [None]
